FAERS Safety Report 4834850-4 (Version None)
Quarter: 2005Q4

REPORT INFORMATION
  Report Type: 
  Country: None (occurrence: None)
  Receive Date: 20051115
  Receipt Date: 20051104
  Transmission Date: 20060501
  Serious: Yes (Hospitalization)
  Sender: FDA-Public Use
  Company Number: EM2005-0582

PATIENT
  Age: 35 Year
  Sex: Male
  Weight: 71 kg

DRUGS (8)
  1. PROLEUKIN [Suspect]
     Indication: METASTATIC MALIGNANT MELANOMA
     Dosage: 32 MU, Q24H, INTRAVENOUS; 16 MU, Q24H, INTRAVENOUS; 8 MU, Q24H, INTRAVENOUS; 8 MU, Q24H, INTRAVENOUS
     Route: 042
     Dates: start: 20051024, end: 20051025
  2. PROLEUKIN [Suspect]
     Indication: METASTATIC MALIGNANT MELANOMA
     Dosage: 32 MU, Q24H, INTRAVENOUS; 16 MU, Q24H, INTRAVENOUS; 8 MU, Q24H, INTRAVENOUS; 8 MU, Q24H, INTRAVENOUS
     Route: 042
     Dates: start: 20051025, end: 20051026
  3. PROLEUKIN [Suspect]
     Indication: METASTATIC MALIGNANT MELANOMA
     Dosage: 32 MU, Q24H, INTRAVENOUS; 16 MU, Q24H, INTRAVENOUS; 8 MU, Q24H, INTRAVENOUS; 8 MU, Q24H, INTRAVENOUS
     Route: 042
     Dates: start: 20051026, end: 20051027
  4. PROLEUKIN [Suspect]
     Indication: METASTATIC MALIGNANT MELANOMA
     Dosage: 32 MU, Q24H, INTRAVENOUS; 16 MU, Q24H, INTRAVENOUS; 8 MU, Q24H, INTRAVENOUS; 8 MU, Q24H, INTRAVENOUS
     Route: 042
     Dates: start: 20051027, end: 20051028
  5. INTERFERON ALFA(INTERFERON ALFA) [Suspect]
     Indication: METASTATIC MALIGNANT MELANOMA
     Dates: start: 20051024, end: 20051028
  6. TEMODAR [Suspect]
     Indication: METASTATIC MALIGNANT MELANOMA
     Dates: start: 20051024, end: 20051028
  7. CISPLATIN [Suspect]
     Indication: METASTATIC MALIGNANT MELANOMA
     Dates: start: 20051024, end: 20051028
  8. VINBLASTINE SULFATE [Suspect]
     Indication: METASTATIC MALIGNANT MELANOMA
     Dates: start: 20051024, end: 20051028

REACTIONS (4)
  - LUNG NEOPLASM [None]
  - NEUTROPENIC SEPSIS [None]
  - THERAPY NON-RESPONDER [None]
  - VOMITING [None]
